FAERS Safety Report 7158901-X (Version None)
Quarter: 2010Q4

REPORT INFORMATION
  Report Type: 
  Country: None (occurrence: None)
  Receive Date: 20101214
  Receipt Date: 20101208
  Transmission Date: 20110411
  Serious: Yes (Hospitalization, Other)
  Sender: FDA-Public Use
  Company Number: IE-ABBOTT-10P-167-0672207-00

PATIENT
  Age: 57 Year
  Sex: Female

DRUGS (6)
  1. CLARITHROMYCIN [Suspect]
     Indication: PNEUMONIA
     Route: 048
  2. TACROLIMUS [Interacting]
     Indication: OBLITERATIVE BRONCHIOLITIS
     Route: 065
  3. TACROLIMUS [Interacting]
     Dosage: 1MG/0.5MG DAILY
     Route: 065
  4. PREDNISOLONE [Concomitant]
     Indication: PRODUCT USED FOR UNKNOWN INDICATION
     Route: 065
  5. AZATHIOPRINE [Concomitant]
     Indication: PRODUCT USED FOR UNKNOWN INDICATION
  6. AMOXICILLIN [Concomitant]
     Indication: PNEUMONIA
     Route: 065

REACTIONS (3)
  - DRUG INTERACTION [None]
  - DRUG LEVEL INCREASED [None]
  - HAEMOLYTIC URAEMIC SYNDROME [None]
